FAERS Safety Report 8799114 (Version 1)
Quarter: 2012Q4

REPORT INFORMATION
  Report Type: 
  Country: US (occurrence: US)
  Receive Date: 20120920
  Receipt Date: 20120920
  Transmission Date: 20130627
  Serious: No
  Sender: FDA-Public Use
  Company Number: US-ASTRAZENECA-2011SE76684

PATIENT
  Age: 42 Year
  Sex: Female

DRUGS (11)
  1. LISINOPRIL [Suspect]
     Route: 048
  2. MAXZIDE-25 [Concomitant]
     Dosage: DAILY DOSAGE 25MG TO 37.5MG ONE TABLET ONCE A DAY
     Route: 048
  3. ASPIRIN [Concomitant]
     Route: 048
  4. CITALOPRAM [Concomitant]
     Route: 048
  5. CYCLOBENZAPRINE [Concomitant]
     Route: 048
  6. ERGOCALCIFEROL [Concomitant]
     Dosage: 50000 UNITS ONE CAPULE ONCE A WEEK
     Route: 048
  7. IBUPROFEN [Concomitant]
     Route: 048
  8. IBUPROFEN [Concomitant]
     Route: 048
  9. LOVASTATIN [Concomitant]
     Indication: BLOOD CHOLESTEROL INCREASED
     Route: 048
  10. METFORMIN [Concomitant]
     Route: 048
  11. PROPRANOLOL [Concomitant]
     Route: 048

REACTIONS (2)
  - Feeling abnormal [Unknown]
  - Drug hypersensitivity [Unknown]
